FAERS Safety Report 10626281 (Version 1)
Quarter: 2014Q4

REPORT INFORMATION
  Report Type: Other
  Country: GB (occurrence: GB)
  Receive Date: 20141204
  Receipt Date: 20141204
  Transmission Date: 20150529
  Serious: Yes (Hospitalization)
  Sender: FDA-Public Use
  Company Number: GB-SHIRE-GB201408510

PATIENT
  Sex: Male

DRUGS (1)
  1. ELAPRASE [Suspect]
     Active Substance: IDURSULFASE
     Indication: PRODUCT USED FOR UNKNOWN INDICATION
     Dosage: 12 MG (TWO 6 MG VIALS), 1X/WEEK
     Route: 041

REACTIONS (6)
  - Carpal tunnel syndrome [Unknown]
  - Pain [Unknown]
  - Heart rate increased [Unknown]
  - Body temperature increased [Unknown]
  - Infusion related reaction [Unknown]
  - Arthropathy [Unknown]
